FAERS Safety Report 4989590-8 (Version None)
Quarter: 2006Q2

REPORT INFORMATION
  Report Type: 
  Country: None (occurrence: None)
  Receive Date: 20060426
  Receipt Date: 20060411
  Transmission Date: 20061013
  Serious: Yes (Other)
  Sender: FDA-Public Use
  Company Number: WAES 0604USA01861

PATIENT
  Sex: 0

DRUGS (3)
  1. HYDRODIURIL [Suspect]
     Indication: HYPERTENSION
  2. TAB OLMESARTAN MEDOXOMIL [Suspect]
     Indication: HYPERTENSION
     Dosage: PO
     Route: 048
  3. AMLODIPINE BESYLATE [Suspect]
     Indication: HYPERTENSION
     Dosage: PO
     Route: 048

REACTIONS (1)
  - MYOCARDIAL INFARCTION [None]
